FAERS Safety Report 5613363-6 (Version None)
Quarter: 2008Q1

REPORT INFORMATION
  Report Type: 
  Country: None (occurrence: None)
  Receive Date: 20080129
  Receipt Date: 20080110
  Transmission Date: 20080703
  Serious: Yes (Other)
  Sender: FDA-Public Use
  Company Number: 2008JP000146

PATIENT
  Age: 53 Year
  Sex: Female

DRUGS (7)
  1. PROGRAF [Suspect]
     Indication: LIVER TRANSPLANT
  2. METHYLPREDNISOLONE [Concomitant]
  3. AZATHIOPRINE [Concomitant]
  4. CYCLOSPORINE [Concomitant]
  5. MICAFUNGIN [Concomitant]
  6. AMPHOTERICIN B [Concomitant]
  7. ITRACONAZOLE [Concomitant]

REACTIONS (4)
  - BRAIN ABSCESS [None]
  - BRONCHOPULMONARY ASPERGILLOSIS [None]
  - CEREBRAL ASPERGILLOSIS [None]
  - CREATININE RENAL CLEARANCE DECREASED [None]
